FAERS Safety Report 8209787-3 (Version None)
Quarter: 2012Q1

REPORT INFORMATION
  Report Type: 
  Country: None (occurrence: None)
  Receive Date: 20120314
  Receipt Date: 20120308
  Transmission Date: 20120608
  Serious: Yes (Other)
  Sender: FDA-Public Use
  Company Number: US-BAYER-2012-023381

PATIENT
  Age: 65 Year
  Sex: Female
  Weight: 122 kg

DRUGS (4)
  1. ANTI-DIABETICS [Concomitant]
  2. CHOLESTEROL [Concomitant]
  3. SODIUM BICARBONATE [Suspect]
     Dosage: 2 DF, PRN
     Route: 048
     Dates: start: 20120201, end: 20120201
  4. ANTITHYROID PREPARATIONS [Concomitant]

REACTIONS (1)
  - VAGINAL HAEMORRHAGE [None]
